FAERS Safety Report 13134004 (Version 2)
Quarter: 2017Q1

REPORT INFORMATION
  Report Type: Report from Study
  Country: FR (occurrence: FR)
  Receive Date: 20170120
  Receipt Date: 20170207
  Transmission Date: 20170428
  Serious: Yes (Other)
  Sender: FDA-Public Use
  Company Number: FR-JNJFOC-20170113076

PATIENT
  Age: 52 Year
  Sex: Female
  Weight: 99 kg

DRUGS (10)
  1. SEROPLEX [Concomitant]
     Active Substance: ESCITALOPRAM OXALATE
     Route: 048
  2. COLCHIMAX [Concomitant]
     Active Substance: COLCHICINE\DICYCLOMINE HYDROCHLORIDE
     Route: 048
  3. LEVOTHYROX [Concomitant]
     Active Substance: LEVOTHYROXINE
     Route: 048
  4. NOCTAMIDE [Concomitant]
     Active Substance: LORMETAZEPAM
     Route: 048
  5. XEROQUEL [Concomitant]
     Active Substance: QUETIAPINE FUMARATE
     Route: 048
  6. PRIMPERAN [Concomitant]
     Active Substance: METOCLOPRAMIDE HYDROCHLORIDE
     Route: 065
  7. TARDYFERON [Concomitant]
     Active Substance: FERROUS SULFATE
     Route: 048
  8. STELARA [Suspect]
     Active Substance: USTEKINUMAB
     Indication: PSORIASIS
     Route: 058
     Dates: start: 20140525, end: 201506
  9. VALIUM [Concomitant]
     Active Substance: DIAZEPAM
     Route: 048
  10. INEXIUM [Concomitant]
     Active Substance: ESOMEPRAZOLE
     Route: 048

REACTIONS (3)
  - Treatment noncompliance [Unknown]
  - Non-alcoholic steatohepatitis [Recovering/Resolving]
  - Anaemia [Unknown]

NARRATIVE: CASE EVENT DATE: 201503
